FAERS Safety Report 6993596-7 (Version None)
Quarter: 2010Q3

REPORT INFORMATION
  Report Type: 
  Country: None (occurrence: None)
  Receive Date: 20100917
  Receipt Date: 20100913
  Transmission Date: 20110219
  Serious: Yes (Death)
  Sender: FDA-Public Use
  Company Number: PHHY2010FR61155

PATIENT
  Sex: Female
  Weight: 0.995 kg

DRUGS (2)
  1. TEGRETOL [Suspect]
     Dosage: 1200 MG DAILY
     Route: 064
  2. LAMISIL [Suspect]
     Dosage: 200 MG, BID
     Route: 064

REACTIONS (6)
  - COARCTATION OF THE AORTA [None]
  - DILATATION VENTRICULAR [None]
  - DRUG EXPOSURE DURING PREGNANCY [None]
  - ENDOCARDIAL DISEASE [None]
  - HEART DISEASE CONGENITAL [None]
  - MYOCARDIAL INFARCTION [None]
